FAERS Safety Report 10593408 (Version 1)
Quarter: 2014Q4

REPORT INFORMATION
  Report Type: Spontaneous
  Country: CA (occurrence: CA)
  Receive Date: 20141119
  Receipt Date: 20141119
  Transmission Date: 20150529
  Serious: Yes (Other)
  Sender: FDA-Public Use
  Company Number: ALCN2014CA006305

PATIENT
  Age: 54 Year
  Sex: Male

DRUGS (4)
  1. GLYBURIDE. [Concomitant]
     Active Substance: GLYBURIDE
     Dosage: 2 UNK, UNK
     Route: 048
  2. ONGLYZA [Concomitant]
     Active Substance: SAXAGLIPTIN HYDROCHLORIDE
     Dosage: 1 UNK, UNK
     Route: 048
  3. TRAVATAN Z [Suspect]
     Active Substance: TRAVOPROST
     Dosage: 1 UNK, UNK
     Route: 047
     Dates: end: 20141024
  4. TRAVATAN Z [Suspect]
     Active Substance: TRAVOPROST
     Dosage: UNK

REACTIONS (3)
  - Gaze palsy [Not Recovered/Not Resolved]
  - Vision blurred [Not Recovered/Not Resolved]
  - Visual impairment [Not Recovered/Not Resolved]
